FAERS Safety Report 10246648 (Version 1)
Quarter: 2014Q2

REPORT INFORMATION
  Report Type: Report from Study
  Country: IN (occurrence: IN)
  Receive Date: 20140619
  Receipt Date: 20140619
  Transmission Date: 20141212
  Serious: Yes (Other)
  Sender: FDA-Public Use
  Company Number: IN-BAXTER-2014BAX031691

PATIENT
  Sex: Female

DRUGS (1)
  1. DIANEAL PD-2 PERITONEAL DIALISIS SOLUTION ULTRABAG WITH 1.5% DEXTROSE [Suspect]
     Indication: PERITONEAL DIALYSIS
     Dosage: 2 BAGS OF 2L
     Route: 033
     Dates: start: 20140420

REACTIONS (2)
  - Swelling [Unknown]
  - Dyspnoea [Unknown]
